FAERS Safety Report 8143736-1 (Version None)
Quarter: 2012Q1

REPORT INFORMATION
  Report Type: 
  Country: None (occurrence: None)
  Receive Date: 20120217
  Receipt Date: 20120210
  Transmission Date: 20120608
  Serious: Yes (Hospitalization, Other)
  Sender: FDA-Public Use
  Company Number: US-SANOFI-AVENTIS-2011SA079578

PATIENT
  Age: 62 Year
  Sex: Male
  Weight: 95.25 kg

DRUGS (48)
  1. DEXAMETHASONE/TOBRAMYCIN [Concomitant]
     Indication: RETINAL TEAR
     Dates: start: 20110628
  2. VIGAMOX [Concomitant]
     Indication: EYE OPERATION
     Route: 031
     Dates: start: 20110524
  3. GRANISETRON [Concomitant]
     Dates: start: 20100921
  4. POTASSIUM CHLORIDE [Concomitant]
     Dates: start: 20100506
  5. METOPROLOL TARTRATE [Concomitant]
     Dates: start: 20100506
  6. IBUPROFEN [Concomitant]
  7. CRESTOR [Concomitant]
  8. ZYPREXA [Suspect]
     Indication: DEPRESSION
  9. LOTEPREDNOL ETABONATE [Concomitant]
     Indication: RETINAL TEAR
     Route: 031
     Dates: start: 20111016
  10. DOXAZOSIN MESYLATE [Concomitant]
  11. KETOROLAC TROMETHAMINE [Concomitant]
     Indication: CATARACT OPERATION
     Dates: start: 20110102
  12. AZITHROMYCIN [Concomitant]
     Indication: EAR INFECTION
     Dates: start: 20110209
  13. FLUTICASONE PROPIONATE [Concomitant]
     Indication: SINUS CONGESTION
     Dates: start: 20110506
  14. FOLIC ACID [Concomitant]
     Indication: DEPRESSION
  15. HYDROCODONE BITARTRATE AND ACETAMINOPHEN [Concomitant]
     Indication: PAIN
     Dosage: 5/325
     Dates: start: 20100616
  16. METFORMIN HCL [Concomitant]
     Dates: start: 20110228
  17. RANOLAZINE [Concomitant]
     Dates: start: 20100422
  18. AMBIEN CR [Suspect]
     Route: 048
  19. CLONAZEPAM [Suspect]
     Indication: PAIN
  20. CEPHALEXIN [Concomitant]
     Dates: start: 20100510
  21. PRAMIPEXOLE DIHYCHLLORIDE [Concomitant]
  22. NASCOBAL [Concomitant]
     Indication: VITAMIN B12 DECREASED
     Route: 045
     Dates: start: 20091129
  23. LOTEPREDNOL [Concomitant]
     Indication: INTRAOCULAR PRESSURE INCREASED
     Route: 031
     Dates: start: 20110913
  24. LEVOTHYROXINE SODIUM [Concomitant]
  25. AMBIEN CR [Suspect]
     Route: 048
  26. AMBIEN CR [Suspect]
     Route: 048
     Dates: end: 20111006
  27. TRAZODONE HYDROCHLORIDE [Suspect]
     Dates: start: 20110204
  28. ILOPERIDONE [Suspect]
  29. DIFLUPREDNATE [Concomitant]
     Route: 031
     Dates: start: 20110525
  30. CARISOPRODOL [Concomitant]
     Dates: start: 20100625
  31. RESTASIS [Concomitant]
     Indication: DRY EYE
     Route: 031
     Dates: start: 20090707
  32. ALL OTHER THERAPEUTIC PRODUCTS [Suspect]
  33. LATANOPROST [Concomitant]
     Indication: CATARACT OPERATION
     Route: 031
     Dates: start: 20110428
  34. NEVANAC [Concomitant]
     Route: 031
     Dates: start: 20110524
  35. METOPROLOL SUCCINATE [Concomitant]
     Dates: start: 20100408
  36. FINASTERIDE [Concomitant]
  37. LOVAZA [Concomitant]
  38. AMBIEN CR [Suspect]
     Route: 048
     Dates: start: 20090101
  39. CLONAZEPAM [Suspect]
     Indication: ANXIETY
  40. HOMATROPINE/HYDROCODONE [Concomitant]
     Indication: PAIN
     Dates: start: 20110209
  41. FUROSEMIDE [Concomitant]
     Dates: start: 20100506
  42. ACETAMINOPHEN [Concomitant]
  43. AMBIEN CR [Suspect]
     Route: 048
  44. SERTRALINE HYDROCHLORIDE [Suspect]
     Indication: DEPRESSION
  45. CYCLOBENZAPRINE [Suspect]
     Dates: start: 20100528
  46. NITROGLYCERIN COMP. [Concomitant]
     Indication: CHEST PAIN
     Dosage: 1-3 TABS
     Dates: start: 20100408
  47. HYDROMORPHONE HCL [Concomitant]
     Dates: start: 20100506
  48. PREDNISOLONE [Concomitant]
     Indication: CATARACT OPERATION
     Route: 031
     Dates: start: 20110102

REACTIONS (22)
  - CORONARY ARTERY OCCLUSION [None]
  - GLAUCOMA [None]
  - DRY EYE [None]
  - TESTICULAR CYST [None]
  - ARTHRITIS [None]
  - SKIN SWELLING [None]
  - BALANCE DISORDER [None]
  - BACK PAIN [None]
  - BRADYPHRENIA [None]
  - HEADACHE [None]
  - PAIN [None]
  - NECK PAIN [None]
  - MUSCULOSKELETAL PAIN [None]
  - PAIN IN EXTREMITY [None]
  - HYPERAESTHESIA [None]
  - PAIN OF SKIN [None]
  - MEMORY IMPAIRMENT [None]
  - DIZZINESS [None]
  - WOUND INFECTION FUNGAL [None]
  - HYDROCELE [None]
  - SKIN WARM [None]
  - NAUSEA [None]
